FAERS Safety Report 6233066-7 (Version None)
Quarter: 2009Q2

REPORT INFORMATION
  Report Type: 
  Country: None (occurrence: None)
  Receive Date: 20090616
  Receipt Date: 20090616
  Transmission Date: 20091009
  Serious: No
  Sender: FDA-Public Use
  Company Number: None

PATIENT
  Age: 71 Year
  Sex: Male
  Weight: 54.86 kg

DRUGS (1)
  1. REGULAR INSULIN [Suspect]
     Dosage: 40 UNITS EVERY DAY SQ
     Route: 058
     Dates: start: 20090123, end: 20090131

REACTIONS (1)
  - HYPOGLYCAEMIA [None]
